FAERS Safety Report 25436258 (Version 1)
Quarter: 2025Q2

REPORT INFORMATION
  Report Type: Spontaneous
  Country: US (occurrence: US)
  Receive Date: 20250614
  Receipt Date: 20250614
  Transmission Date: 20250716
  Serious: No
  Sender: ZYDUS PHARM
  Company Number: US-CADILA HEALTHCARE LIMITED-US-ZYDUS-124564

PATIENT

DRUGS (1)
  1. AMLODIPINE BESYLATE [Suspect]
     Active Substance: AMLODIPINE BESYLATE
     Indication: Product used for unknown indication
     Route: 048
     Dates: start: 202504

REACTIONS (5)
  - Eye pain [Recovering/Resolving]
  - Trigeminal neuralgia [Recovering/Resolving]
  - Blood pressure decreased [Recovering/Resolving]
  - Vitamin D decreased [Recovering/Resolving]
  - Vitamin B12 decreased [Recovering/Resolving]

NARRATIVE: CASE EVENT DATE: 20250401
